FAERS Safety Report 9432092 (Version 2)
Quarter: 2013Q3

REPORT INFORMATION
  Report Type: Spontaneous
  Country: US (occurrence: US)
  Receive Date: 20130731
  Receipt Date: 20130814
  Transmission Date: 20140515
  Serious: No
  Sender: FDA-Public Use
  Company Number: US-PFIZER INC-2013221393

PATIENT
  Age: 55 Year
  Sex: Female

DRUGS (9)
  1. XELJANZ [Suspect]
     Indication: RHEUMATOID ARTHRITIS
     Dosage: 5 MG, 2X/DAY
     Route: 048
     Dates: start: 2013
  2. METHOTREXATE [Concomitant]
     Dosage: UNK
  3. LIPITOR [Concomitant]
     Dosage: UNK
  4. POTASSIUM [Concomitant]
     Dosage: UNK
  5. CALCIUM [Concomitant]
     Dosage: UNK
  6. GLUCOSAMINE [Concomitant]
     Dosage: UNK
  7. PREDNISONE [Concomitant]
     Dosage: UNK
  8. FOLIC ACID [Concomitant]
     Dosage: UNK
  9. MILK THISTLE [Concomitant]
     Dosage: UNK

REACTIONS (1)
  - Hepatic enzyme decreased [Unknown]
